FAERS Safety Report 5278959-2 (Version None)
Quarter: 2007Q1

REPORT INFORMATION
  Report Type: 
  Country: None (occurrence: None)
  Receive Date: 20070328
  Receipt Date: 20061212
  Transmission Date: 20070707
  Serious: No
  Sender: FDA-Public Use
  Company Number: US-AMGEN-US203218

PATIENT
  Sex: Female

DRUGS (3)
  1. NEULASTA [Suspect]
     Indication: CHEMOTHERAPY
     Route: 065
     Dates: start: 20061207
  2. ADRIAMYCIN PFS [Concomitant]
     Route: 065
     Dates: start: 20061206
  3. CYCLOPHOSPHAMIDE [Concomitant]
     Route: 065
     Dates: start: 20061206

REACTIONS (1)
  - RASH PRURITIC [None]
